FAERS Safety Report 17677422 (Version 1)
Quarter: 2020Q2

REPORT INFORMATION
  Report Type: Spontaneous
  Country: US (occurrence: US)
  Receive Date: 20200416
  Receipt Date: 20200416
  Transmission Date: 20200714
  Serious: No
  Sender: FDA-Public Use
  Company Number: US-ELI_LILLY_AND_COMPANY-US202004003728

PATIENT
  Sex: Female

DRUGS (3)
  1. EMGALITY [Suspect]
     Active Substance: GALCANEZUMAB-GNLM
     Indication: MIGRAINE
     Dosage: 1 DOSAGE FORM, UNKNOWN
     Route: 065
     Dates: start: 201910
  2. TROKENDI [Concomitant]
     Active Substance: TOPIRAMATE
  3. ZOLMITRIPTAN. [Concomitant]
     Active Substance: ZOLMITRIPTAN

REACTIONS (3)
  - Migraine [Not Recovered/Not Resolved]
  - Malaise [Unknown]
  - Product dose omission [Not Recovered/Not Resolved]
